FAERS Safety Report 12634923 (Version 1)
Quarter: 2016Q3

REPORT INFORMATION
  Report Type: Spontaneous
  Country: US (occurrence: US)
  Receive Date: 20160809
  Receipt Date: 20160809
  Transmission Date: 20161109
  Serious: No
  Sender: FDA-Public Use
  Company Number: US-PFIZER INC-2016344228

PATIENT
  Age: 65 Year
  Sex: Female
  Weight: 52.24 kg

DRUGS (8)
  1. LEVOTHYROXINE. [Concomitant]
     Active Substance: LEVOTHYROXINE
     Indication: THYROID DISORDER
     Dosage: 50 UG, 1X/DAY
  2. CRANBERRY. [Concomitant]
     Active Substance: CRANBERRY
     Indication: URINARY TRACT INFECTION
     Dosage: 84 MG, 1X/DAY
  3. SERTRALINE HCL [Concomitant]
     Active Substance: SERTRALINE HYDROCHLORIDE
     Indication: DEPRESSION
     Dosage: 50 MG, 1X/DAY
     Dates: start: 201601
  4. CALCIUM CARBONATE AND VITAMIN D [Concomitant]
     Indication: OSTEOPOROSIS
     Dosage: 600 MG, 1X/DAY
  5. TIZANIDINE. [Concomitant]
     Active Substance: TIZANIDINE
     Indication: MUSCLE RELAXANT THERAPY
     Dosage: 4 MG, AS NEEDED (ONE - TWO TIMES A DAY)
  6. ESTRING [Suspect]
     Active Substance: ESTRADIOL
     Indication: VULVOVAGINAL DRYNESS
     Dosage: 2 MG, UNK
     Route: 067
  7. VITAMIN E [Concomitant]
     Active Substance: .ALPHA.-TOCOPHEROL
     Dosage: 400 IU, 1X/DAY
  8. VITAMIN D3 [Concomitant]
     Active Substance: CHOLECALCIFEROL
     Indication: OSTEOPOROSIS
     Dosage: 500 IU, 1X/DAY

REACTIONS (2)
  - Dyspareunia [Unknown]
  - Product size issue [Unknown]

NARRATIVE: CASE EVENT DATE: 20160712
